FAERS Safety Report 4392825-6 (Version None)
Quarter: 2004Q3

REPORT INFORMATION
  Report Type: 
  Country: None (occurrence: None)
  Receive Date: 20040702
  Receipt Date: 20040318
  Transmission Date: 20050211
  Serious: Yes (Other)
  Sender: FDA-Public Use
  Company Number: 2004UW05192

PATIENT
  Age: 68 Year
  Sex: Female
  Weight: 68.0396 kg

DRUGS (6)
  1. CRESTOR [Suspect]
     Indication: BLOOD CHOLESTEROL INCREASED
     Dosage: 10 MG PO
     Route: 048
  2. MULTIVITAMIN [Concomitant]
  3. PREMARIN [Concomitant]
  4. PROVERA [Concomitant]
  5. TYLENOL [Concomitant]
  6. UNSPECIFIED PAIN PILLS [Concomitant]

REACTIONS (2)
  - ARTHRALGIA [None]
  - MUSCLE DISORDER [None]
